FAERS Safety Report 24226536 (Version 1)
Quarter: 2024Q3

REPORT INFORMATION
  Report Type: Spontaneous
  Country: FR (occurrence: FR)
  Receive Date: 20240820
  Receipt Date: 20240820
  Transmission Date: 20241017
  Serious: Yes (Hospitalization, Other)
  Sender: AUROBINDO
  Company Number: FR-AFSSAPS-AN2024000947

PATIENT
  Age: 71 Year
  Sex: Male
  Weight: 73 kg

DRUGS (15)
  1. LANSOPRAZOLE [Interacting]
     Active Substance: LANSOPRAZOLE
     Indication: Product used for unknown indication
     Dosage: 15 MILLIGRAM, ONCE A DAY
     Route: 065
  2. NEFOPAM [Interacting]
     Active Substance: NEFOPAM
     Indication: Product used for unknown indication
     Dosage: 60 MILLIGRAM, ONCE A DAY
     Route: 065
  3. OXYCODONE [Interacting]
     Active Substance: OXYCODONE
     Indication: Product used for unknown indication
     Dosage: UNK
     Route: 048
  4. ALFUZOSIN HYDROCHLORIDE [Interacting]
     Active Substance: ALFUZOSIN HYDROCHLORIDE
     Indication: Product used for unknown indication
     Dosage: 10 MILLIGRAM
     Route: 065
  5. HEPARIN [Interacting]
     Active Substance: HEPARIN SODIUM
     Indication: Peripheral ischaemia
     Dosage: 15000 INTERNATIONAL UNIT, ONCE A DAY
     Route: 042
     Dates: start: 20240701, end: 20240713
  6. KARDEGIC [Interacting]
     Active Substance: ASPIRIN DL-LYSINE
     Indication: Peripheral ischaemia
     Dosage: 1 DOSAGE FORM, ONCE A DAY
     Route: 048
     Dates: end: 20240712
  7. MORPHINE [Interacting]
     Active Substance: MORPHINE
     Indication: Product used for unknown indication
     Dosage: UNK
     Route: 042
     Dates: start: 20240705
  8. UROKINASE [Interacting]
     Active Substance: UROKINASE
     Indication: Peripheral ischaemia
     Dosage: 35000 INTERNATIONAL UNIT, ONCE A DAY
     Route: 042
     Dates: end: 20240712
  9. UROKINASE [Interacting]
     Active Substance: UROKINASE
     Dosage: 25000 INTERNATIONAL UNIT, ONCE A DAY
     Route: 042
     Dates: start: 20240707, end: 20240708
  10. ESOMEPRAZOLE [Concomitant]
     Active Substance: ESOMEPRAZOLE
     Indication: Product used for unknown indication
     Dosage: 40 MILLIGRAM, ONCE A DAY
     Route: 065
  11. ATORVASTATIN\EZETIMIBE [Concomitant]
     Active Substance: ATORVASTATIN\EZETIMIBE
     Indication: Product used for unknown indication
     Dosage: 1 DOSAGE FORM, ONCE A DAY
     Route: 065
  12. FELODIPINE [Concomitant]
     Active Substance: FELODIPINE
     Indication: Product used for unknown indication
     Dosage: 10 MILLIGRAM, ONCE A DAY
     Route: 065
  13. HYDROCHLOROTHIAZIDE\IRBESARTAN [Concomitant]
     Active Substance: HYDROCHLOROTHIAZIDE\IRBESARTAN
     Indication: Product used for unknown indication
     Dosage: 1 DOSAGE FORM, ONCE A DAY
     Route: 065
  14. METFORMIN [Concomitant]
     Active Substance: METFORMIN HYDROCHLORIDE
     Indication: Product used for unknown indication
     Dosage: 500 MILLIGRAM, ONCE A DAY
     Route: 065
  15. SOTALOL [Concomitant]
     Active Substance: SOTALOL\SOTALOL HYDROCHLORIDE
     Indication: Product used for unknown indication
     Dosage: 80 MILLIGRAM, TWO TIMES A DAY(80 MG, Q12H, 1-0-1)
     Route: 065

REACTIONS (2)
  - Cerebral haematoma [Not Recovered/Not Resolved]
  - Drug interaction [Recovered/Resolved]

NARRATIVE: CASE EVENT DATE: 20240707
